FAERS Safety Report 9269886 (Version 2)
Quarter: 2013Q3

REPORT INFORMATION
  Report Type: Spontaneous
  Country: US (occurrence: US)
  Receive Date: 20130503
  Receipt Date: 20130701
  Transmission Date: 20140515
  Serious: Yes (Hospitalization, Other)
  Sender: FDA-Public Use
  Company Number: US-UCBSA-084452

PATIENT
  Age: 46 Year
  Sex: Female
  Weight: 54.43 kg

DRUGS (6)
  1. VIMPAT [Suspect]
     Indication: COMPLEX PARTIAL SEIZURES
     Dosage: 150 AM AND 150 PM
  2. TRILEPTAL [Suspect]
     Dosage: 300 MG,300 MG, AND 450 MG
     Dates: start: 2012
  3. TRILEPTAL [Suspect]
     Dosage: REDUCED DOSE
     Dates: end: 2013
  4. ZONEGRAN [Concomitant]
     Dosage: 100MG QAM AND 300 MG QPM
  5. MORPHINE [Concomitant]
     Indication: PAIN
     Dates: start: 201304
  6. DILAUDID [Concomitant]
     Indication: PAIN
     Dates: start: 201304

REACTIONS (5)
  - Psychotic disorder [Recovered/Resolved]
  - Nephrolithiasis [Recovered/Resolved]
  - Convulsion [Recovered/Resolved]
  - Somnolence [Recovered/Resolved]
  - Dizziness [Recovered/Resolved]
